FAERS Safety Report 5181564-X (Version None)
Quarter: 2006Q4

REPORT INFORMATION
  Report Type: 
  Country: None (occurrence: None)
  Receive Date: 20061220
  Receipt Date: 20060203
  Transmission Date: 20070319
  Serious: No
  Sender: FDA-Public Use
  Company Number: US-GLAXOSMITHKLINE-A0592246A

PATIENT
  Age: 35 Year
  Sex: Female

DRUGS (1)
  1. COMMIT [Suspect]
     Dates: start: 20060129, end: 20060131

REACTIONS (5)
  - DYSPEPSIA [None]
  - HICCUPS [None]
  - MALAISE [None]
  - STOMACH DISCOMFORT [None]
  - VOMITING [None]
